FAERS Safety Report 6336511-1 (Version None)
Quarter: 2009Q3

REPORT INFORMATION
  Report Type: 
  Country: None (occurrence: None)
  Receive Date: 20090901
  Receipt Date: 20090821
  Transmission Date: 20100115
  Serious: Yes (Hospitalization)
  Sender: FDA-Public Use
  Company Number: AU-CELGENEUS-008-20785-09051202

PATIENT
  Sex: Female
  Weight: 72.65 kg

DRUGS (6)
  1. VIDAZA [Suspect]
     Indication: MYELODYSPLASTIC SYNDROME
     Route: 065
     Dates: start: 20090515
  2. VIDAZA [Suspect]
     Route: 065
  3. THALIDOMIDE [Suspect]
     Indication: MYELODYSPLASTIC SYNDROME
     Route: 048
     Dates: start: 20090417, end: 20090514
  4. CLEXANE [Concomitant]
     Dosage: PROPHYLACTIC
     Route: 058
     Dates: start: 20090515, end: 20090517
  5. CLEXANE [Concomitant]
     Indication: PULMONARY EMBOLISM
     Route: 058
     Dates: start: 20090518, end: 20090520
  6. CLEXANE [Concomitant]
     Route: 058
     Dates: start: 20090521

REACTIONS (3)
  - DIARRHOEA [None]
  - EMBOLISM [None]
  - PULMONARY EMBOLISM [None]
